FAERS Safety Report 13410329 (Version 2)
Quarter: 2018Q1

REPORT INFORMATION
  Report Type: Spontaneous
  Country: US (occurrence: US)
  Receive Date: 20170406
  Receipt Date: 20180118
  Transmission Date: 20180508
  Serious: No
  Sender: FDA-Public Use
  Company Number: US-JNJFOC-20170303091

PATIENT
  Age: 8 Year
  Sex: Male

DRUGS (5)
  1. RISPERDAL [Suspect]
     Active Substance: RISPERIDONE
     Indication: ATTENTION DEFICIT/HYPERACTIVITY DISORDER
     Route: 048
     Dates: end: 20130123
  2. RISPERIDONE. [Suspect]
     Active Substance: RISPERIDONE
     Indication: TREMOR
     Dosage: VARYING DOSES OF 0.5 MG AND 01 MG
     Route: 048
     Dates: start: 20080715, end: 20130123
  3. RISPERDAL [Suspect]
     Active Substance: RISPERIDONE
     Indication: TREMOR
     Dosage: VARYING DOSES OF UNSPECIFIED DOSE, 0.5 MG AND 01 MG
     Route: 048
     Dates: start: 20020114, end: 20080605
  4. RISPERDAL [Suspect]
     Active Substance: RISPERIDONE
     Indication: ATTENTION DEFICIT/HYPERACTIVITY DISORDER
     Dosage: VARYING DOSES OF UNSPECIFIED DOSE, 0.5 MG AND 01 MG
     Route: 048
     Dates: start: 20020114, end: 20080605
  5. RISPERDAL [Suspect]
     Active Substance: RISPERIDONE
     Indication: TREMOR
     Route: 048
     Dates: end: 20130123

REACTIONS (4)
  - Off label use [Unknown]
  - Gynaecomastia [Unknown]
  - Product use in unapproved indication [Unknown]
  - Emotional disorder [Unknown]

NARRATIVE: CASE EVENT DATE: 20020114
